FAERS Safety Report 18089266 (Version 4)
Quarter: 2020Q3

REPORT INFORMATION
  Report Type: Spontaneous
  Country: NL (occurrence: NL)
  Receive Date: 20200730
  Receipt Date: 20200826
  Transmission Date: 20201103
  Serious: Yes (Hospitalization, Other)
  Sender: FDA-Public Use
  Company Number: NL-ABBVIE-20K-114-3502262-00

PATIENT
  Age: 50 Year
  Sex: Female

DRUGS (1)
  1. TESTOSTERONE. [Suspect]
     Active Substance: TESTOSTERONE
     Indication: VIRILISM
     Route: 065

REACTIONS (2)
  - Off label use [Unknown]
  - Intraductal proliferative breast lesion [Recovered/Resolved]
